FAERS Safety Report 18630197 (Version 2)
Quarter: 2021Q1

REPORT INFORMATION
  Report Type: Spontaneous
  Country: US (occurrence: US)
  Receive Date: 20201217
  Receipt Date: 20210315
  Transmission Date: 20210419
  Serious: No
  Sender: FDA-Public Use
  Company Number: US-VERTEX PHARMACEUTICALS-2020-024467

PATIENT
  Age: 40 Year
  Sex: Female
  Weight: 49 kg

DRUGS (2)
  1. TRIKAFTA [Suspect]
     Active Substance: ELEXACAFTOR\IVACAFTOR\TEZACAFTOR
     Dosage: AM TABLETS ALTERNATIVELY (2 TABS ON 1 DAY AND 1 TAB NEXT DAY)
     Route: 048
  2. TRIKAFTA [Suspect]
     Active Substance: ELEXACAFTOR\IVACAFTOR\TEZACAFTOR
     Indication: CYSTIC FIBROSIS
     Dosage: 2 ORANGE TABS100 MG ELEXACAFTOR/ 50 MG TEZACAFTOR/ 75 MG IVACAFTOR AM; 1 BLUE TAB150MG IVACAFTOR PM
     Route: 048

REACTIONS (6)
  - COVID-19 [Unknown]
  - Feeling abnormal [Unknown]
  - Anxiety [Unknown]
  - Hypoaesthesia oral [Unknown]
  - Anaemia [Unknown]
  - Mood swings [Unknown]

NARRATIVE: CASE EVENT DATE: 202012
